FAERS Safety Report 7927113-1 (Version None)
Quarter: 2011Q4

REPORT INFORMATION
  Report Type: 
  Country: None (occurrence: None)
  Receive Date: 20111117
  Receipt Date: 20111117
  Transmission Date: 20120403
  Serious: Yes (Other)
  Sender: FDA-Public Use
  Company Number: None

PATIENT
  Age: 71 Year
  Sex: Male
  Weight: 27 kg

DRUGS (6)
  1. ROMIDEPSIN [Suspect]
     Indication: MYCOSIS FUNGOIDES
     Dosage: 14MG/M2 WEEKLY IV
     Route: 042
     Dates: start: 20110901, end: 20111001
  2. GABAPENTIN [Concomitant]
  3. VALACYCLOVIR [Concomitant]
  4. CEPHALEXIN [Concomitant]
  5. PREDNISONE TAB [Concomitant]
  6. ROMIDEPSIN 7MG/M2 [Suspect]
     Dosage: 7MG/M2 WEEKLY IV
     Route: 042

REACTIONS (2)
  - LICHENOID KERATOSIS [None]
  - STEVENS-JOHNSON SYNDROME [None]
